FAERS Safety Report 25956546 (Version 2)
Quarter: 2025Q4

REPORT INFORMATION
  Report Type: Spontaneous
  Country: JP (occurrence: JP)
  Receive Date: 20251024
  Receipt Date: 20251212
  Transmission Date: 20260117
  Serious: Yes (Death, Hospitalization, Other)
  Sender: MERCK SHARP & DOHME LLC
  Company Number: JP-009507513-2342064

PATIENT
  Age: 77 Year
  Sex: Female

DRUGS (3)
  1. PEMBROLIZUMAB [Suspect]
     Active Substance: PEMBROLIZUMAB
     Indication: Clear cell renal cell carcinoma
     Dosage: UNKNOWN
     Route: 065
  2. PREDONINE [Concomitant]
     Active Substance: PREDNISOLONE
     Indication: Rheumatoid arthritis
     Route: 065
  3. LENVATINIB [Suspect]
     Active Substance: LENVATINIB
     Indication: Clear cell renal cell carcinoma
     Dosage: STRENGTH: 10 MG
     Route: 065

REACTIONS (8)
  - Altered state of consciousness [Fatal]
  - Adrenal insufficiency [Recovered/Resolved]
  - Malaise [Recovering/Resolving]
  - Proteinuria [Unknown]
  - Rash [Unknown]
  - Interstitial lung disease [Unknown]
  - Hypercapnia [Fatal]
  - Adrenal insufficiency [Unknown]
